FAERS Safety Report 9966993 (Version 1)
Quarter: 2014Q1

REPORT INFORMATION
  Report Type: Spontaneous
  Country: IT (occurrence: IT)
  Receive Date: 20140305
  Receipt Date: 20140305
  Transmission Date: 20141002
  Serious: Yes (Hospitalization)
  Sender: FDA-Public Use
  Company Number: IT-ASTRAZENECA-2014SE15161

PATIENT
  Age: 18968 Day
  Sex: Female

DRUGS (6)
  1. SEROQUEL [Suspect]
     Indication: DRUG ABUSE
     Route: 048
     Dates: start: 20140226, end: 20140226
  2. ANAFRANIL [Suspect]
     Indication: DRUG ABUSE
     Dosage: 25, UNKNOWN
     Route: 048
     Dates: start: 201201
  3. ANAFRANIL [Suspect]
     Indication: DRUG ABUSE
     Dosage: 75, UNKNOWN
     Route: 048
     Dates: start: 201203
  4. ANAFRANIL [Suspect]
     Indication: DRUG ABUSE
     Route: 048
     Dates: start: 20140226, end: 20140226
  5. TOLEP [Suspect]
     Indication: DRUG ABUSE
     Route: 048
     Dates: start: 201203
  6. TOLEP [Suspect]
     Indication: DRUG ABUSE
     Route: 048
     Dates: start: 20140226, end: 20140226

REACTIONS (2)
  - Drug abuse [Recovering/Resolving]
  - Sopor [Recovering/Resolving]
